FAERS Safety Report 17355722 (Version 2)
Quarter: 2020Q1

REPORT INFORMATION
  Report Type: Spontaneous
  Country: US (occurrence: US)
  Receive Date: 20200131
  Receipt Date: 20200227
  Transmission Date: 20200409
  Serious: No
  Sender: FDA-Public Use
  Company Number: US-SA-2020SA024217

PATIENT
  Age: 56 Year
  Sex: Female

DRUGS (1)
  1. DUPIXENT [Suspect]
     Active Substance: DUPILUMAB
     Indication: DERMATITIS ATOPIC
     Dosage: 300 MG, QOW
     Route: 058
     Dates: start: 20200116

REACTIONS (5)
  - Influenza [Unknown]
  - Pain in jaw [Unknown]
  - Fatigue [Unknown]
  - Nasopharyngitis [Unknown]
  - Oral pain [Unknown]

NARRATIVE: CASE EVENT DATE: 202001
